FAERS Safety Report 17632936 (Version 1)
Quarter: 2020Q2

REPORT INFORMATION
  Report Type: Spontaneous
  Country: US (occurrence: US)
  Receive Date: 20200406
  Receipt Date: 20200406
  Transmission Date: 20200713
  Serious: No
  Sender: FDA-Public Use
  Company Number: US-SA-2020SA084942

PATIENT
  Age: 73 Year
  Sex: Male

DRUGS (10)
  1. OMEPRAZOLE. [Concomitant]
     Active Substance: OMEPRAZOLE
  2. ELIQUIS [Suspect]
     Active Substance: APIXABAN
     Indication: ATRIAL FIBRILLATION
  3. TYLENOL [Concomitant]
     Active Substance: ACETAMINOPHEN
  4. PLAVIX [Suspect]
     Active Substance: CLOPIDOGREL BISULFATE
  5. MELOXICAM. [Concomitant]
     Active Substance: MELOXICAM
  6. LISINOPRIL. [Concomitant]
     Active Substance: LISINOPRIL
  7. CRESTOR [Concomitant]
     Active Substance: ROSUVASTATIN CALCIUM
  8. GABAPENTIN. [Concomitant]
     Active Substance: GABAPENTIN
  9. ASPIRIN (E.C.) [Concomitant]
     Active Substance: ASPIRIN
  10. HYDROCODONE [Concomitant]
     Active Substance: HYDROCODONE
     Indication: PAIN

REACTIONS (7)
  - Blood urine present [Unknown]
  - Haematoma [Unknown]
  - Atrial fibrillation [Unknown]
  - Pain [Unknown]
  - Hypoacusis [Unknown]
  - Peripheral swelling [Unknown]
  - Joint swelling [Unknown]
